FAERS Safety Report 8613885-X (Version None)
Quarter: 2012Q3

REPORT INFORMATION
  Report Type: 
  Country: None (occurrence: None)
  Receive Date: 20120823
  Receipt Date: 20120810
  Transmission Date: 20120928
  Serious: Yes (Other)
  Sender: FDA-Public Use
  Company Number: JP-009507513-1208JPN006108

PATIENT

DRUGS (12)
  1. PEG-INTRON [Suspect]
     Dosage: 0.8 MICROGRAM PER KILOGRAM, UNK
     Route: 058
     Dates: start: 20120627
  2. REBETOL [Suspect]
     Dosage: 400 MG, QD
     Route: 048
     Dates: start: 20120627, end: 20120709
  3. RIKKUNSHI-TO [Concomitant]
     Route: 048
  4. SULPIRIDE [Concomitant]
  5. DOMPERIDONE [Concomitant]
     Dosage: UNK, PRN
  6. L CARTIN [Concomitant]
     Route: 048
  7. REBETOL [Suspect]
     Dosage: 200 MG, QD
     Route: 048
     Dates: start: 20120710
  8. REBETOL [Suspect]
     Indication: HEPATITIS C
     Dosage: 600 MG, QD
     Route: 048
     Dates: start: 20120529, end: 20120626
  9. EPADEL [Concomitant]
     Route: 048
  10. PEG-INTRON [Suspect]
     Indication: HEPATITIS C
     Dosage: 1.5 MICROGRAM PER KILOGRAM, QW
     Route: 058
     Dates: start: 20120529, end: 20120626
  11. LORFENAMIN [Concomitant]
     Dosage: UNK, PRN
     Route: 048
  12. TELAVIC [Suspect]
     Indication: HEPATITIS C
     Dosage: 2250 MG, QD
     Route: 048
     Dates: start: 20120529, end: 20120608

REACTIONS (1)
  - RASH [None]
